FAERS Safety Report 16192970 (Version 2)
Quarter: 2019Q2

REPORT INFORMATION
  Report Type: Spontaneous
  Country: DE (occurrence: DE)
  Receive Date: 20190413
  Receipt Date: 20190429
  Transmission Date: 20190711
  Serious: Yes (Life-Threatening, Hospitalization, Other)
  Sender: FDA-Public Use
  Company Number: DE-ACCORD-119649

PATIENT
  Age: 48 Year
  Sex: Female

DRUGS (8)
  1. APREPITANT. [Concomitant]
     Active Substance: APREPITANT
     Dosage: (125 MG/DAY,?D1; 80 MG/DAY, D2-5
     Dates: start: 201206
  2. IRINOTECAN [Suspect]
     Active Substance: IRINOTECAN
     Indication: NEUROENDOCRINE CARCINOMA
     Dosage: 50 MG/M2?/DAY ON DAYS 1/8/15, EVERY 4 WEEKS
     Dates: start: 201206
  3. ONDANSETRON [Concomitant]
     Active Substance: ONDANSETRON
     Dosage: 16 MG/DAY
     Dates: start: 201206
  4. ENOXAPARIN [Concomitant]
     Active Substance: ENOXAPARIN
     Dates: start: 201206
  5. SODIUM PICOSULFATE [Concomitant]
     Active Substance: SODIUM PICOSULFATE
     Indication: CONSTIPATION
     Dates: start: 201206
  6. CISPLATIN. [Suspect]
     Active Substance: CISPLATIN
     Indication: NEUROENDOCRINE CARCINOMA
     Dosage: CDDP 20?MG/M2 ON DAYS 1-5, EVERY 4 WEEKS
     Dates: start: 201206
  7. DEXAMETHASONE. [Concomitant]
     Active Substance: DEXAMETHASONE
     Dosage: (12 MG/DAY, D1; 8 MG/DAY, D2-5
     Dates: start: 201206
  8. PANTOPRAZOLE [Concomitant]
     Active Substance: PANTOPRAZOLE
     Dosage: 40/MG/DAY
     Dates: start: 201206

REACTIONS (9)
  - Staphylococcal sepsis [Recovered/Resolved]
  - Dehydration [Recovered/Resolved]
  - Proctalgia [Recovered/Resolved]
  - Fatigue [Recovered/Resolved]
  - Leukopenia [Recovered/Resolved]
  - Escherichia urinary tract infection [Recovered/Resolved]
  - Anaemia [Recovered/Resolved]
  - Diarrhoea [Recovered/Resolved]
  - Device related sepsis [Recovered/Resolved]

NARRATIVE: CASE EVENT DATE: 2012
